FAERS Safety Report 5343499-9 (Version None)
Quarter: 2007Q2

REPORT INFORMATION
  Report Type: 
  Country: None (occurrence: None)
  Receive Date: 20070604
  Receipt Date: 20070524
  Transmission Date: 20071010
  Serious: Yes (Hospitalization)
  Sender: FDA-Public Use
  Company Number: PHHO2007GB08922

PATIENT
  Age: 50 Year
  Sex: Male

DRUGS (1)
  1. CYCLOSPORINE [Suspect]
     Indication: LIVER TRANSPLANT
     Dosage: 75 MG
     Route: 048
     Dates: start: 20070419, end: 20070427

REACTIONS (2)
  - IMPAIRED HEALING [None]
  - WOUND SECRETION [None]
